FAERS Safety Report 21825495 (Version 1)
Quarter: 2023Q1

REPORT INFORMATION
  Report Type: Spontaneous
  Country: US (occurrence: None)
  Receive Date: 20230105
  Receipt Date: 20230105
  Transmission Date: 20230418
  Serious: No
  Sender: FDA-Public Use
  Company Number: None

PATIENT
  Age: 76 Year
  Sex: Female
  Weight: 90.72 kg

DRUGS (16)
  1. LUMIGAN [Suspect]
     Active Substance: BIMATOPROST
     Indication: Hypertension
     Dosage: FREQUENCY : AT BEDTIME;?
     Route: 047
     Dates: start: 202203, end: 202212
  2. TYLENOL [Concomitant]
     Active Substance: ACETAMINOPHEN
  3. ASPIRIN [Concomitant]
     Active Substance: ASPIRIN
  4. B-COMPLEX VIT [Concomitant]
  5. BIMATOPROST [Concomitant]
     Active Substance: BIMATOPROST
  6. CERVEDILOL [Concomitant]
  7. CETIRIZINE [Concomitant]
     Active Substance: CETIRIZINE HYDROCHLORIDE
  8. VITAMIN D3 [Concomitant]
     Active Substance: CHOLECALCIFEROL
  9. GLUCOSAMINE [Concomitant]
     Active Substance: GLUCOSAMINE
  10. GLUCOSE TEST STRIPS [Concomitant]
  11. METFORMIN [Concomitant]
     Active Substance: METFORMIN HYDROCHLORIDE
  12. NYSTATIN [Concomitant]
     Active Substance: NYSTATIN
  13. OMEPRAZOLE [Concomitant]
     Active Substance: OMEPRAZOLE
  14. SIMVASTATIN [Concomitant]
     Active Substance: SIMVASTATIN
  15. TRPSPIUM [Concomitant]
  16. VALSARTAN [Concomitant]
     Active Substance: VALSARTAN

REACTIONS (9)
  - Visual impairment [None]
  - Intraocular pressure increased [None]
  - Eye colour change [None]
  - Growth of eyelashes [None]
  - Hypertrichosis [None]
  - Rash [None]
  - Feeling hot [None]
  - Erythema [None]
  - Pruritus [None]

NARRATIVE: CASE EVENT DATE: 20220318
